FAERS Safety Report 6651748-X (Version None)
Quarter: 2010Q1

REPORT INFORMATION
  Report Type: 
  Country: None (occurrence: None)
  Receive Date: 20100322
  Receipt Date: 20100315
  Transmission Date: 20100710
  Serious: Yes (Hospitalization)
  Sender: FDA-Public Use
  Company Number: 2010JP001598

PATIENT
  Age: 78 Year
  Sex: Male

DRUGS (2)
  1. VESICARE [Suspect]
     Dosage: 5 MG, /D , ORAL
     Route: 048
     Dates: start: 20090129
  2. URIE (SILODOSIN) [Concomitant]

REACTIONS (2)
  - FALL [None]
  - MUSCULAR WEAKNESS [None]
